FAERS Safety Report 18930276 (Version 2)
Quarter: 2021Q1

REPORT INFORMATION
  Report Type: Spontaneous
  Country: FR (occurrence: FR)
  Receive Date: 20210223
  Receipt Date: 20210302
  Transmission Date: 20210420
  Serious: Yes (Death)
  Sender: FDA-Public Use
  Company Number: FR-TEVA-2021-FR-1881461

PATIENT
  Age: 91 Year
  Sex: Female
  Weight: 56 kg

DRUGS (5)
  1. FENTANYL. [Suspect]
     Active Substance: FENTANYL
     Indication: PAIN
     Dosage: 12UG / H OVER 3 DAYS
     Route: 003
     Dates: start: 20210126
  2. FUROSEMIDE. [Concomitant]
     Active Substance: FUROSEMIDE
     Dates: start: 20200914
  3. LEVETIRACETAM. [Concomitant]
     Active Substance: LEVETIRACETAM
     Dates: start: 20200914
  4. CITALOPRAM (CHLORHYDRATE DE) [Concomitant]
     Active Substance: CITALOPRAM HYDROCHLORIDE
     Dates: start: 20200702
  5. AMLOR 5 MG, GELULE [Concomitant]
     Active Substance: AMLODIPINE BESYLATE
     Dates: start: 20200918

REACTIONS (3)
  - Acute respiratory distress syndrome [Fatal]
  - Hypertension [Fatal]
  - Tachycardia [Fatal]

NARRATIVE: CASE EVENT DATE: 20210126
